FAERS Safety Report 20918797 (Version 2)
Quarter: 2022Q2

REPORT INFORMATION
  Report Type: Spontaneous
  Country: FR (occurrence: FR)
  Receive Date: 20220606
  Receipt Date: 20220615
  Transmission Date: 20220720
  Serious: Yes (Congenital Anomaly, Other)
  Sender: FDA-Public Use
  Company Number: FR-NOVARTISPH-NVSC2022FR126567

PATIENT
  Age: 13 Year
  Sex: Male

DRUGS (2)
  1. TEGRETOL [Suspect]
     Active Substance: CARBAMAZEPINE
     Indication: Foetal exposure during pregnancy
     Dosage: UNK
     Route: 064
  2. VALPROATE SODIUM [Suspect]
     Active Substance: VALPROATE SODIUM
     Indication: Foetal exposure during pregnancy
     Dosage: UNK
     Route: 064

REACTIONS (21)
  - Angina pectoris [Unknown]
  - Hypospadias [Unknown]
  - Nasopharyngitis [Unknown]
  - Cough [Unknown]
  - Rhinitis [Unknown]
  - Meniscus injury [Unknown]
  - Rhinorrhoea [Unknown]
  - Ear, nose and throat disorder [Unknown]
  - Lordosis [Unknown]
  - Joint hyperextension [Unknown]
  - Scoliosis [Unknown]
  - Knee deformity [Unknown]
  - Foetal exposure during pregnancy [Unknown]
  - Facial bones fracture [Unknown]
  - Disturbance in attention [Unknown]
  - Antisocial behaviour [Unknown]
  - Behaviour disorder [Unknown]
  - Ligament sprain [Unknown]
  - Injury [Unknown]
  - Psychomotor skills impaired [Unknown]
  - Fine motor skill dysfunction [Unknown]

NARRATIVE: CASE EVENT DATE: 20021101
